FAERS Safety Report 11348592 (Version 1)
Quarter: 2015Q3

REPORT INFORMATION
  Report Type: Report from Study
  Country: NL (occurrence: NL)
  Receive Date: 20150806
  Receipt Date: 20150806
  Transmission Date: 20151125
  Serious: Yes (Death)
  Sender: FDA-Public Use
  Company Number: NL-ABBVIE-15P-114-1439838-00

PATIENT
  Age: 77 Year
  Sex: Male

DRUGS (2)
  1. LACTIC ACID. [Concomitant]
     Active Substance: LACTIC ACID
     Indication: PRODUCT USED FOR UNKNOWN INDICATION
     Dosage: 30MG/G CETOMACROGOL: CUTANEOUS
  2. LUCRIN DEPOT [Suspect]
     Active Substance: LEUPROLIDE ACETATE
     Indication: PROSTATE CANCER
     Route: 058
     Dates: start: 20130321, end: 20150224

REACTIONS (1)
  - Death [Fatal]

NARRATIVE: CASE EVENT DATE: 20150505
